FAERS Safety Report 6276320-5 (Version None)
Quarter: 2009Q3

REPORT INFORMATION
  Report Type: 
  Country: None (occurrence: None)
  Receive Date: 20090722
  Receipt Date: 20090710
  Transmission Date: 20100115
  Serious: Yes (Hospitalization)
  Sender: FDA-Public Use
  Company Number: AU-ROCHE-640354

PATIENT
  Sex: Male
  Weight: 105 kg

DRUGS (26)
  1. TAMIFLU [Suspect]
     Route: 048
     Dates: start: 20090622, end: 20090624
  2. MIRTAZAPINE [Concomitant]
     Dosage: BEFORE BED AS DIRECTED.
  3. BION TEARS [Concomitant]
     Dosage: DRUG: BION TEARS 0.3%-0.1% EYE DROPS, AS DIRECTED.
  4. CAVERJECT [Concomitant]
     Dosage: FORM: SYRINGE, DRUG: CAVERJECT IMPULSE 20 MCG SYRINGE.
  5. DARUNAVIR [Concomitant]
  6. ACETAMINOPHEN WITH PROPOXYPHENE HCL TAB [Concomitant]
     Dosage: STRENGTH REPORTED AS 32.5 MG AND 325 MG.FREQUENCY: AS NESSESSARY EVERY 4 HOURS.
  7. EPILIM [Concomitant]
     Dosage: AS DIRECTED; FORM: ENTERIC COATED TABLET.
  8. FAMCICLOVIR [Concomitant]
     Dosage: FOR 7 DAYS.
  9. IMODIUM [Concomitant]
     Dosage: AS DIRECTED.
  10. LAMIVUDINE [Concomitant]
  11. LEVITRA [Concomitant]
  12. LIPITOR [Concomitant]
  13. METOCLOPRAMIDE [Concomitant]
     Dosage: AS DIRECTED.
  14. NEO-BETALIN 12 [Concomitant]
     Dosage: DRUG: NEO-B12, STRENGTH: 1MG/ML
  15. ACETAMINOPHEN [Concomitant]
     Dosage: AS NESSESSARY.
  16. PRINIVIL [Concomitant]
     Dosage: IN THE MORNING AS DIRECTED.
  17. RALTEGRAVIR [Concomitant]
  18. RANI [Concomitant]
     Dosage: AS DIRECTED.
  19. RITONAVIR [Concomitant]
  20. SUSTANON [Concomitant]
  21. TEMAZEPAM [Concomitant]
     Dosage: DOSEAGE REPORTED AS10-20 MG BEFORE BED.
  22. TRAMADOL HCL [Concomitant]
     Dosage: DOSAGE: 50-100 MG AS NESSESSARY.
  23. TRAMADOL HCL [Concomitant]
     Dosage: FORM: SKLOW-RELEASE RABLET.
  24. VALIUM [Concomitant]
  25. VIAGRA [Concomitant]
  26. STEMETIL [Concomitant]

REACTIONS (2)
  - DEPRESSED LEVEL OF CONSCIOUSNESS [None]
  - HYPOTENSION [None]
